FAERS Safety Report 21939412 (Version 1)
Quarter: 2023Q1

REPORT INFORMATION
  Report Type: Report from Study
  Country: US (occurrence: US)
  Receive Date: 20230201
  Receipt Date: 20230201
  Transmission Date: 20230418
  Serious: No
  Sender: FDA-Public Use
  Company Number: US-EXELIXIS-CABO-21047315

PATIENT
  Sex: Female

DRUGS (2)
  1. CABOMETYX [Suspect]
     Active Substance: CABOZANTINIB S-MALATE
     Indication: Renal cancer
     Dosage: 60 MG, QD
     Route: 048
     Dates: start: 20211123
  2. CABOMETYX [Suspect]
     Active Substance: CABOZANTINIB S-MALATE
     Indication: Metastases to adrenals

REACTIONS (10)
  - Frequent bowel movements [Unknown]
  - Acne [Unknown]
  - Hyperkeratosis [Unknown]
  - Myalgia [Unknown]
  - Pruritus [Unknown]
  - Hair colour changes [Unknown]
  - Stomatitis [Unknown]
  - Taste disorder [Unknown]
  - Arthralgia [Unknown]
  - Diarrhoea [Unknown]
